FAERS Safety Report 10420458 (Version 1)
Quarter: 2014Q3

REPORT INFORMATION
  Report Type: Spontaneous
  Country: US (occurrence: None)
  Receive Date: 20140701
  Receipt Date: 20140701
  Transmission Date: 20150326
  Serious: No
  Sender: FDA-Public Use
  Company Number: 1000067324

PATIENT
  Age: 89 Year
  Sex: Female

DRUGS (5)
  1. VICODIN ( HYDROCODONE, ACETAMINOPHEN) (HYDROCODONE, ACETAMINOPHEN) [Concomitant]
  2. AMBIEN ( ZOLPIDEM TARTRATE) (ZOLPIDEM TARTRATE) [Concomitant]
  3. PROZAC ( FLUOXETINE HYDROCHLORIDE) (FLUOXETINE HYDROCHLORIDE) [Concomitant]
  4. LINZESS [Suspect]
     Active Substance: LINACLOTIDE
     Indication: CONSTIPATION
     Dosage: 290 MCG ( 290 MCG, 1 N 1 D) ORAL
     Route: 048
     Dates: start: 20140404
  5. PROTONIX ( PANTOPRAZOLE SODIUM SESQUIHYDRATE) (PANTOPRAZOLE SODIUM SESQUIHYDRATE) [Concomitant]

REACTIONS (1)
  - Cold sweat [None]

NARRATIVE: CASE EVENT DATE: 201404
